FAERS Safety Report 7109664-5 (Version None)
Quarter: 2010Q4

REPORT INFORMATION
  Report Type: 
  Country: None (occurrence: None)
  Receive Date: 20101115
  Receipt Date: 20101115
  Transmission Date: 20110411
  Serious: Yes (Hospitalization)
  Sender: FDA-Public Use
  Company Number: None

PATIENT
  Age: 63 Year
  Sex: Male
  Weight: 107 kg

DRUGS (1)
  1. NEOMYCIN [Suspect]
     Dosage: TOP
     Dates: start: 20100522, end: 20100622

REACTIONS (1)
  - DERMATITIS [None]
